FAERS Safety Report 17930646 (Version 1)
Quarter: 2020Q2

REPORT INFORMATION
  Report Type: Spontaneous
  Country: US (occurrence: US)
  Receive Date: 20200623
  Receipt Date: 20200623
  Transmission Date: 20200714
  Serious: No
  Sender: FDA-Public Use
  Company Number: US-ASTRAZENECA-2020SE71113

PATIENT
  Age: 32440 Day
  Sex: Male

DRUGS (2)
  1. BUDESONIDE AND FORMOTEROL [Suspect]
     Active Substance: BUDESONIDE\FORMOTEROL
     Dosage: 160/4.5UG. DOSE AND FREQUENCY UNKNOWN.
     Route: 055
     Dates: start: 20200525
  2. SYMBICORT [Suspect]
     Active Substance: BUDESONIDE\FORMOTEROL FUMARATE DIHYDRATE
     Dosage: 160/4.5UG. DOSE AND FREQUENCY UNKNOWN.
     Route: 055

REACTIONS (4)
  - Hypoacusis [Unknown]
  - Malaise [Unknown]
  - Intentional product misuse [Unknown]
  - Drug delivery system issue [Unknown]

NARRATIVE: CASE EVENT DATE: 20200525
